FAERS Safety Report 20346893 (Version 1)
Quarter: 2022Q1

REPORT INFORMATION
  Report Type: Spontaneous
  Country: US (occurrence: None)
  Receive Date: 20220116
  Receipt Date: 20220116
  Transmission Date: 20220424
  Serious: Yes (Other)
  Sender: FDA-Public Use
  Company Number: None

PATIENT
  Age: 29 Year
  Sex: Female
  Weight: 69.75 kg

DRUGS (1)
  1. VENLAFAXINE HYDROCHLORIDE [Suspect]
     Active Substance: VENLAFAXINE HYDROCHLORIDE
     Indication: Obsessive-compulsive disorder
     Dosage: FREQUENCY : DAILY;?
     Route: 048

REACTIONS (5)
  - Product substitution issue [None]
  - Anxiety [None]
  - Tachyphrenia [None]
  - Obsessive-compulsive disorder [None]
  - Drug ineffective [None]

NARRATIVE: CASE EVENT DATE: 20150101
